FAERS Safety Report 6611388-5 (Version None)
Quarter: 2010Q1

REPORT INFORMATION
  Report Type: 
  Country: None (occurrence: None)
  Receive Date: 20100222
  Receipt Date: 20100209
  Transmission Date: 20100710
  Serious: Yes (Other)
  Sender: FDA-Public Use
  Company Number: B0634523A

PATIENT
  Age: 8 Year

DRUGS (6)
  1. BUSULPHAN (FORMULATION UNKNOWN) (BUSULPHAN) (GENERIC) [Suspect]
     Dosage: ORAL
     Route: 048
  2. CYCLOSPORINE [Suspect]
     Indication: PROPHYLAXIS AGAINST GRAFT VERSUS HOST DISEASE
  3. STEROID [Concomitant]
  4. PREDNISOLONE [Suspect]
  5. CYCLOPHOSPHAMIDE [Suspect]
     Dosage: INTRAVENOUS
     Route: 042
  6. ANTITHYMOCYTE IG [Suspect]

REACTIONS (2)
  - EPSTEIN-BARR VIRUS ASSOCIATED LYMPHOPROLIFERATIVE DISORDER [None]
  - TONSILLAR ULCER [None]
